FAERS Safety Report 5266784-8 (Version None)
Quarter: 2007Q1

REPORT INFORMATION
  Report Type: 
  Country: None (occurrence: None)
  Receive Date: 20070312
  Receipt Date: 20070302
  Transmission Date: 20070707
  Serious: Yes (Other)
  Sender: FDA-Public Use
  Company Number: 430005N06USA

PATIENT
  Age: 56 Year
  Sex: Female
  Weight: 53 kg

DRUGS (9)
  1. NOVANTRONE [Suspect]
     Indication: MULTIPLE SCLEROSIS
     Dosage: SEE IMAGE
     Route: 042
     Dates: start: 20020816, end: 20031120
  2. NOVANTRONE [Suspect]
     Indication: MULTIPLE SCLEROSIS
     Dosage: SEE IMAGE
     Route: 042
     Dates: start: 20040301, end: 20070129
  3. LEVOTHYROXINE SODIUM [Concomitant]
  4. RISEDRONATE SODIUM [Concomitant]
  5. ALENDRONATE SODIUM [Concomitant]
  6. CALCIUM CARBONATE [Concomitant]
  7. CARBAMAZEPINE [Concomitant]
  8. OESTRANORM [Concomitant]
  9. CLONAZEPAM [Concomitant]

REACTIONS (1)
  - BASAL CELL CARCINOMA [None]
